FAERS Safety Report 7410755-X (Version None)
Quarter: 2011Q2

REPORT INFORMATION
  Report Type: 
  Country: None (occurrence: None)
  Receive Date: 20110405
  Receipt Date: 20110328
  Transmission Date: 20111010
  Serious: Yes (Hospitalization)
  Sender: FDA-Public Use
  Company Number: DAV-AE-MTX-11-008

PATIENT
  Age: 17 Year
  Sex: Female

DRUGS (2)
  1. METHOTREXATE [Suspect]
     Indication: ACUTE LYMPHOCYTIC LEUKAEMIA
     Dosage: INTRATHECAL AND ORAL
     Route: 037
  2. ETOPOSIDE [Concomitant]

REACTIONS (7)
  - PSEUDOMONAS INFECTION [None]
  - CARDIOTOXICITY [None]
  - DYSARTHRIA [None]
  - HEMIPARESIS [None]
  - FACIAL PARESIS [None]
  - ENCEPHALOPATHY [None]
  - DYSPHAGIA [None]
